FAERS Safety Report 7516805-4 (Version None)
Quarter: 2011Q2

REPORT INFORMATION
  Report Type: 
  Country: None (occurrence: None)
  Receive Date: 20110601
  Receipt Date: 20110527
  Transmission Date: 20111010
  Serious: Yes (Hospitalization, Other)
  Sender: FDA-Public Use
  Company Number: SG-MERCK-1105USA02835

PATIENT
  Age: 52 Year
  Sex: Female

DRUGS (2)
  1. JANUVIA [Suspect]
     Indication: DIABETES MELLITUS
     Route: 048
     Dates: start: 20101113, end: 20101201
  2. LIPITOR [Concomitant]
     Indication: HYPERLIPIDAEMIA
     Route: 065

REACTIONS (3)
  - RASH [None]
  - SWELLING [None]
  - SKIN REACTION [None]
